FAERS Safety Report 4654832-5 (Version None)
Quarter: 2005Q2

REPORT INFORMATION
  Report Type: 
  Country: None (occurrence: None)
  Receive Date: 20050506
  Receipt Date: 20040506
  Transmission Date: 20051028
  Serious: No
  Sender: FDA-Public Use
  Company Number: US-GLAXOSMITHKLINE-A0509841A

PATIENT
  Age: 9 Year
  Sex: Male

DRUGS (1)
  1. AMOXIL [Suspect]
     Dosage: 1.5TSP TWICE PER DAY
     Route: 048
     Dates: start: 20040504, end: 20040504

REACTIONS (1)
  - URTICARIA [None]
